FAERS Safety Report 7359165-4 (Version None)
Quarter: 2011Q1

REPORT INFORMATION
  Report Type: 
  Country: None (occurrence: None)
  Receive Date: 20110310
  Receipt Date: 20110221
  Transmission Date: 20110831
  Serious: Yes (Other)
  Sender: FDA-Public Use
  Company Number: 2011P1004241

PATIENT
  Age: 66 Year
  Sex: Female
  Weight: 113.3993 kg

DRUGS (11)
  1. VITAMIN D [Concomitant]
  2. DIGOXIN [Concomitant]
  3. FUROSEMIDE [Concomitant]
  4. POTASSIUM [Concomitant]
  5. ATENOLOL [Concomitant]
  6. OMEPRAZOLE [Concomitant]
  7. MORPHINE [Concomitant]
  8. MULTI-VITAMIN [Concomitant]
  9. WARFARIN SODIUM [Suspect]
     Indication: ATRIAL FLUTTER
     Dosage: (7.5 MG; M F QD; PO) (3.75 MG; T W TH SAT SUN QD; PO)
     Route: 048
     Dates: start: 20090101
  10. WARFARIN SODIUM [Suspect]
     Indication: ATRIAL FLUTTER
     Dosage: (7.5 MG; M F QD; PO) (3.75 MG; T W TH SAT SUN QD; PO)
     Route: 048
     Dates: start: 20090101
  11. DILTIAZEM [Concomitant]

REACTIONS (1)
  - VISION BLURRED [None]
